FAERS Safety Report 20169952 (Version 2)
Quarter: 2021Q4

REPORT INFORMATION
  Report Type: Other
  Country: MX (occurrence: None)
  Receive Date: 20211210
  Receipt Date: 20211228
  Transmission Date: 20220303
  Serious: Yes (Death)
  Sender: FDA-Public Use
  Company Number: MX-ROCHE-2976733

PATIENT
  Age: 6 Year
  Sex: Male

DRUGS (2)
  1. PULMOZYME [Suspect]
     Active Substance: DORNASE ALFA
     Indication: Cystic fibrosis
     Dosage: DORNASE ALPHA (DEOXYRIBONUCLEASE) 2,500IU / 2.5 ML
     Route: 055
     Dates: start: 20190205, end: 20211114
  2. TOBI [Concomitant]
     Active Substance: TOBRAMYCIN
     Dosage: DOSE IS UNKNOWN
     Route: 055
     Dates: start: 202109

REACTIONS (1)
  - COVID-19 pneumonia [Fatal]

NARRATIVE: CASE EVENT DATE: 20211119
